FAERS Safety Report 7759763-X (Version None)
Quarter: 2011Q3

REPORT INFORMATION
  Report Type: 
  Country: None (occurrence: None)
  Receive Date: 20110919
  Receipt Date: 20110908
  Transmission Date: 20111222
  Serious: Yes (Hospitalization)
  Sender: FDA-Public Use
  Company Number: PHHO2011ES15350

PATIENT
  Sex: Male
  Weight: 72.4 kg

DRUGS (12)
  1. DOPAMINE HCL [Suspect]
  2. PREVENCOR [Concomitant]
     Indication: PROPHYLAXIS
     Dosage: 10 MG, 24 H
     Dates: start: 20110613
  3. BLINDED NO TREATMENT RECEIVED [Suspect]
     Indication: CARDIAC FAILURE ACUTE
     Dosage: CODE NOT BROKEN
     Route: 048
     Dates: start: 20110317
  4. BLINDED PLACEBO [Suspect]
     Indication: CARDIAC FAILURE ACUTE
     Dosage: CODE NOT BROKEN
     Route: 048
     Dates: start: 20110317
  5. FUROSEMIDE [Suspect]
  6. LEVOSIMENDAN [Suspect]
  7. MILRINONE [Suspect]
     Dosage: 200 MG/ 24H
     Dates: start: 20110615
  8. INSULINE [Concomitant]
     Indication: TYPE 2 DIABETES MELLITUS
     Dosage: 30-10-40
     Dates: start: 20110711
  9. FUROSEMIDE [Concomitant]
     Indication: CARDIAC FAILURE CHRONIC
     Dosage: 40 MG, (80-40-0)
     Dates: start: 20110714
  10. HYGROTON [Concomitant]
     Indication: CARDIAC FAILURE CHRONIC
     Dosage: 25 MG/ 24 H
     Dates: start: 20110709
  11. BLINDED ALISKIREN [Suspect]
     Indication: CARDIAC FAILURE ACUTE
     Dosage: CODE NOT BROKEN
     Route: 048
     Dates: start: 20110317
  12. CARVEDILOL [Concomitant]
     Indication: CARDIAC FAILURE CHRONIC
     Dosage: 3.129 MG, BID
     Dates: start: 20110712

REACTIONS (6)
  - LABORATORY TEST ABNORMAL [None]
  - ELECTROLYTE IMBALANCE [None]
  - BLOOD POTASSIUM DECREASED [None]
  - BLOOD UREA INCREASED [None]
  - BLOOD CREATINE INCREASED [None]
  - BLOOD CHLORIDE DECREASED [None]
